FAERS Safety Report 21823221 (Version 2)
Quarter: 2023Q1

REPORT INFORMATION
  Report Type: Report from Study
  Country: US (occurrence: US)
  Receive Date: 20230105
  Receipt Date: 20230207
  Transmission Date: 20230418
  Serious: Yes (Other)
  Sender: FDA-Public Use
  Company Number: US-GILEAD-2022-0605859

PATIENT
  Age: 30 Year
  Sex: Female

DRUGS (48)
  1. AZTREONAM LYSINE [Suspect]
     Active Substance: AZTREONAM LYSINE
     Indication: Infective pulmonary exacerbation of cystic fibrosis
     Dosage: INHALE 1 VIAL VIA ALTERA NEBULIZER THREE TIMES DAILY FOR 28 DAYS ON THEN 28 DAYS OFF
     Route: 055
     Dates: start: 20220609
  2. DIPHENHYDRAMINE [Concomitant]
     Active Substance: DIPHENHYDRAMINE
     Indication: Drug hypersensitivity
  3. FEXOFENADINE [Concomitant]
     Active Substance: FEXOFENADINE HYDROCHLORIDE
  4. AZITHROMYCIN [Concomitant]
     Active Substance: AZITHROMYCIN
  5. NAPROXEN [Concomitant]
     Active Substance: NAPROXEN
  6. ALTEPLASE [Concomitant]
     Active Substance: ALTEPLASE
  7. HYDROXYCHLOROQUINE SULFATE [Concomitant]
     Active Substance: HYDROXYCHLOROQUINE SULFATE
  8. URSODIOL [Concomitant]
     Active Substance: URSODIOL
  9. GLUCAGON [Concomitant]
     Active Substance: GLUCAGON
  10. IBUPROFEN [Concomitant]
     Active Substance: IBUPROFEN
  11. BENZONATATE [Concomitant]
     Active Substance: BENZONATATE
  12. ROBAFEN AC [Concomitant]
     Active Substance: CODEINE PHOSPHATE\GUAIFENESIN
  13. ESOMEPRAZOLE MAGNESIUM [Concomitant]
     Active Substance: ESOMEPRAZOLE MAGNESIUM
  14. POLYETHYLENE GLYCOL 3350 [Concomitant]
     Active Substance: POLYETHYLENE GLYCOL 3350
  15. DEEP SEA PREMIUM SALINE [Concomitant]
  16. FOLIC ACID [Concomitant]
     Active Substance: FOLIC ACID
  17. ALBUTEROL SULFATE [Concomitant]
     Active Substance: ALBUTEROL SULFATE
  18. CETIRIZINE [Concomitant]
     Active Substance: CETIRIZINE HYDROCHLORIDE
  19. ERYTHROMYCIN [Concomitant]
     Active Substance: ERYTHROMYCIN
  20. PYRIDOXINE [Concomitant]
     Active Substance: PYRIDOXINE
  21. PULMOZYME [Concomitant]
     Active Substance: DORNASE ALFA
  22. AZELASTINE [Concomitant]
     Active Substance: AZELASTINE
  23. SODIUM CHLORIDE [Concomitant]
     Active Substance: SODIUM CHLORIDE
  24. ALBUTEROL SULFATE [Concomitant]
     Active Substance: ALBUTEROL SULFATE
  25. TOBRAMYCIN [Concomitant]
     Active Substance: TOBRAMYCIN
  26. CREON [Concomitant]
     Active Substance: PANCRELIPASE AMYLASE\PANCRELIPASE LIPASE\PANCRELIPASE PROTEASE
  27. INSULIN NOS [Concomitant]
     Active Substance: INSULIN NOS
  28. FASENRA [Concomitant]
     Active Substance: BENRALIZUMAB
  29. NORTRIPTYLINE [Concomitant]
     Active Substance: NORTRIPTYLINE
  30. PREDNISONE [Concomitant]
     Active Substance: PREDNISONE
  31. OYSTER SHELL [Concomitant]
     Active Substance: OSTREA EDULIS SHELL
  32. ALBUTEROL\IPRATROPIUM [Concomitant]
     Active Substance: ALBUTEROL\IPRATROPIUM
  33. FLUTICASONE [Concomitant]
     Active Substance: FLUTICASONE
  34. METOCLOPRAMIDE [Concomitant]
     Active Substance: METOCLOPRAMIDE
  35. ACETYLCYSTEINE [Concomitant]
     Active Substance: ACETYLCYSTEINE
  36. BUDESONIDE [Concomitant]
     Active Substance: BUDESONIDE
  37. BROVANA [Concomitant]
     Active Substance: ARFORMOTEROL TARTRATE
  38. MONTELUKAST [Concomitant]
     Active Substance: MONTELUKAST SODIUM
  39. ACETAMINOPHEN\CODEINE PHOSPHATE [Concomitant]
     Active Substance: ACETAMINOPHEN\CODEINE PHOSPHATE
  40. FLUTICASONE PROPIONATE\SALMETEROL XINAFOATE [Concomitant]
     Active Substance: FLUTICASONE PROPIONATE\SALMETEROL XINAFOATE
  41. ONDANSETRON [Concomitant]
     Active Substance: ONDANSETRON
  42. PROMETHAZINE [Concomitant]
     Active Substance: PROMETHAZINE HYDROCHLORIDE
  43. CATHFLO ACTIVASE [Concomitant]
     Active Substance: ALTEPLASE
  44. HYDROXYCHLOROQUINE [Concomitant]
     Active Substance: HYDROXYCHLOROQUINE
  45. ESOMEPRAZOLE [Concomitant]
     Active Substance: ESOMEPRAZOLE
  46. INSULIN LISPRO [Concomitant]
     Active Substance: INSULIN LISPRO
  47. NORTRIPTYLINE [Concomitant]
     Active Substance: NORTRIPTYLINE
  48. METOCLOPRAMIDE [Concomitant]
     Active Substance: METOCLOPRAMIDE

REACTIONS (8)
  - Asthma [Unknown]
  - Inhalation therapy [Unknown]
  - Steroid therapy [Unknown]
  - Impaired quality of life [Unknown]
  - Infective pulmonary exacerbation of cystic fibrosis [Unknown]
  - Respiratory syncytial virus infection [Unknown]
  - Product dose omission issue [Unknown]
  - Hospitalisation [Unknown]
